FAERS Safety Report 15357541 (Version 1)
Quarter: 2018Q3

REPORT INFORMATION
  Report Type: Spontaneous
  Country: US (occurrence: US)
  Receive Date: 20180906
  Receipt Date: 20180906
  Transmission Date: 20181010
  Serious: Yes (Other)
  Sender: FDA-Public Use
  Company Number: US-AKORN PHARMACEUTICALS-2018AKN01188

PATIENT
  Age: 17 Year
  Sex: Female

DRUGS (6)
  1. MONO?LINYAH [Concomitant]
     Active Substance: ETHINYL ESTRADIOL\NORGESTIMATE
  2. MYORISAN [Suspect]
     Active Substance: ISOTRETINOIN
     Indication: ACNE
     Dosage: 20 MG, 1X/DAY, EVERY EVENING WITH FOOD
     Route: 048
     Dates: start: 20180606, end: 20180703
  3. MYORISAN [Suspect]
     Active Substance: ISOTRETINOIN
     Dosage: 40 MG, 1X/DAY, IN THE MORNING WITH FOOD
     Route: 048
     Dates: start: 20180712, end: 20180803
  4. MYORISAN [Suspect]
     Active Substance: ISOTRETINOIN
     Indication: ACNE
     Dosage: 40 MG, 1X/DAY, WITH FOOD
     Route: 048
     Dates: start: 20180327, end: 20180606
  5. MYORISAN [Suspect]
     Active Substance: ISOTRETINOIN
     Dosage: 40 MG, 1X/DAY, IN THE MORNING WITH FOOD
     Route: 048
     Dates: start: 20180606, end: 20180703
  6. MYORISAN [Suspect]
     Active Substance: ISOTRETINOIN
     Dosage: 20 MG, 1X/DAY, EVERY EVENING WITH FOOD
     Route: 048
     Dates: start: 20180712, end: 20180803

REACTIONS (5)
  - Stress [Unknown]
  - Irritable bowel syndrome [Unknown]
  - Abdominal pain [Recovering/Resolving]
  - Faeces soft [Recovering/Resolving]
  - Off label use [Recovered/Resolved]

NARRATIVE: CASE EVENT DATE: 2018
